APPROVED DRUG PRODUCT: THEOPHYLLINE
Active Ingredient: THEOPHYLLINE
Strength: 450MG
Dosage Form/Route: TABLET, EXTENDED RELEASE;ORAL
Application: A218401 | Product #001
Applicant: AJANTA PHARMA LTD
Approved: Jan 13, 2025 | RLD: No | RS: No | Type: DISCN